FAERS Safety Report 19890948 (Version 2)
Quarter: 2021Q4

REPORT INFORMATION
  Report Type: Report from Study
  Country: GB (occurrence: GB)
  Receive Date: 20210928
  Receipt Date: 20211013
  Transmission Date: 20220303
  Serious: Yes (Hospitalization)
  Sender: FDA-Public Use
  Company Number: GB-BRISTOL-MYERS SQUIBB COMPANY-BMS-2021-088268

PATIENT
  Age: 56 Year
  Sex: Male
  Weight: 80.5 kg

DRUGS (2)
  1. IPILIMUMAB [Suspect]
     Active Substance: IPILIMUMAB
     Indication: Glioblastoma
     Dosage: 243 MILLIGRAM, EVERY 3 WEEKS FOR 4 DOSES
     Route: 042
     Dates: start: 20210401
  2. TEMOZOLOMIDE [Suspect]
     Active Substance: TEMOZOLOMIDE
     Indication: Glioblastoma
     Dosage: 400 MG DAILY FOR 5 DAYS IN 6 X 28 DAY CYCLES
     Route: 048
     Dates: start: 20210422

REACTIONS (1)
  - Headache [Recovered/Resolved]

NARRATIVE: CASE EVENT DATE: 20210827
